FAERS Safety Report 6827825-7 (Version None)
Quarter: 2010Q3

REPORT INFORMATION
  Report Type: 
  Country: None (occurrence: None)
  Receive Date: 20100709
  Receipt Date: 20070228
  Transmission Date: 20110219
  Serious: Yes (Other)
  Sender: FDA-Public Use
  Company Number: US-PFIZER INC-2007007380

PATIENT
  Sex: Female

DRUGS (14)
  1. CHANTIX [Suspect]
     Indication: SMOKING CESSATION THERAPY
     Route: 048
     Dates: start: 20070117
  2. PERCOCET [Concomitant]
     Route: 048
  3. METHADONE [Concomitant]
     Route: 048
  4. LAMICTAL [Concomitant]
     Route: 048
  5. ZYPREXA [Concomitant]
     Route: 048
  6. KLONOPIN [Concomitant]
     Route: 048
  7. ALLEGRA [Concomitant]
     Route: 048
  8. NEXIUM [Concomitant]
     Route: 048
  9. ZANAFLEX [Concomitant]
     Route: 048
  10. IBUPROFEN [Concomitant]
     Route: 048
  11. GABITRIL [Concomitant]
     Route: 048
  12. HORMONAL CONTRACEPTIVES FOR SYSTEMIC USE [Concomitant]
     Indication: CONTRACEPTION
     Route: 048
  13. PHENERGAN ^AVENTIS PHARMA^ [Concomitant]
     Route: 048
  14. MULTI-VITAMINS [Concomitant]
     Route: 048

REACTIONS (2)
  - CONVULSION [None]
  - VOMITING [None]
